FAERS Safety Report 5012202-4 (Version None)
Quarter: 2006Q2

REPORT INFORMATION
  Report Type: 
  Country: None (occurrence: None)
  Receive Date: 20060406
  Receipt Date: 20050322
  Transmission Date: 20061013
  Serious: Yes (Disabling)
  Sender: FDA-Public Use
  Company Number: SUS1-2005-00224

PATIENT
  Age: 7 Year
  Sex: Male
  Weight: 50 kg

DRUGS (2)
  1. ADDERALL 10 [Suspect]
     Dosage: 20 MG, 1X/DAY:QD, ORAL
     Route: 048
     Dates: start: 20050301, end: 20050301
  2. ADDERALL 10 [Suspect]
     Indication: ATTENTION DEFICIT/HYPERACTIVITY DISORDER
     Dosage: 5 MG, 1X/DAY: QD, ORAL
     Route: 048
     Dates: start: 20050301, end: 20050301

REACTIONS (1)
  - HEADACHE [None]
